FAERS Safety Report 5858952-9 (Version None)
Quarter: 2008Q3

REPORT INFORMATION
  Report Type: 
  Country: None (occurrence: None)
  Receive Date: 20080825
  Receipt Date: 20080818
  Transmission Date: 20090109
  Serious: Yes (Other)
  Sender: FDA-Public Use
  Company Number: 2008SP016904

PATIENT
  Age: 54 Year
  Sex: Female
  Weight: 74.8435 kg

DRUGS (3)
  1. PEG-INTRON [Suspect]
     Indication: HEPATITIS C
     Dates: start: 20080630
  2. REBETOL [Suspect]
     Indication: HEPATITIS C
     Dosage: ; PO
     Route: 048
     Dates: start: 20080630
  3. UNSPECIFIED BLOOD PRESSURE MEDICATION [Concomitant]

REACTIONS (12)
  - ANAEMIA [None]
  - ANXIETY [None]
  - BLOOD DISORDER [None]
  - DEHYDRATION [None]
  - DYSGEUSIA [None]
  - FEELING ABNORMAL [None]
  - GLOSSODYNIA [None]
  - HEADACHE [None]
  - PAROSMIA [None]
  - SKIN DISCOLOURATION [None]
  - STOMACH DISCOMFORT [None]
  - WEIGHT DECREASED [None]
